FAERS Safety Report 4614367-2 (Version None)
Quarter: 2005Q2

REPORT INFORMATION
  Report Type: 
  Country: None (occurrence: None)
  Receive Date: 20050311
  Receipt Date: 20050127
  Transmission Date: 20051028
  Serious: No
  Sender: FDA-Public Use
  Company Number: 2004-00055

PATIENT
  Age: 57 Year
  Sex: Female
  Weight: 96.1 kg

DRUGS (1)
  1. VELCADE [Suspect]
     Indication: MULTIPLE MYELOMA
     Dosage: INTRAVENOUS
     Route: 042
     Dates: start: 20040406

REACTIONS (8)
  - ANXIETY [None]
  - COMPRESSION FRACTURE [None]
  - DYSPNOEA [None]
  - FATIGUE [None]
  - HYPERTENSION [None]
  - NEUROPATHY PERIPHERAL [None]
  - PALPITATIONS [None]
  - URINARY TRACT INFECTION [None]
